FAERS Safety Report 6941091-3 (Version None)
Quarter: 2010Q3

REPORT INFORMATION
  Report Type: 
  Country: None (occurrence: None)
  Receive Date: 20100824
  Receipt Date: 20100824
  Transmission Date: 20110219
  Serious: Yes (Hospitalization)
  Sender: FDA-Public Use
  Company Number: None

PATIENT
  Age: 71 Year
  Sex: Male
  Weight: 97.2 kg

DRUGS (1)
  1. REGLAN [Suspect]
     Dosage: 20 MG AC AND HS PO
     Route: 048

REACTIONS (4)
  - DYSKINESIA [None]
  - DYSPNOEA [None]
  - MEMORY IMPAIRMENT [None]
  - TACHYPNOEA [None]
